FAERS Safety Report 3448328 (Version 4)
Quarter: 2012Q4

REPORT INFORMATION
  Report Type: Report from Study
  Country: CH (occurrence: US)
  Receive Date: 20000321
  Receipt Date: 20121128
  Transmission Date: 20130627
  Serious: Yes (Congenital Anomaly, Other)
  Sender: FDA-Public Use
  Company Number: 2000SUS0218

PATIENT
  Sex: Female
  Weight: 2 kg

DRUGS (5)
  1. SUSTIVA [Suspect]
     Dosage: UNK UNK
     Route: 064
  2. NEVIRAPINE [Suspect]
     Route: 064
  3. VIRACEPT [Suspect]
     Dosage: UNK UNK
     Route: 064
  4. COMBIVIR [Suspect]
     Dosage: UNK UNK
     Route: 064
  5. RETROVIR [Suspect]
     Dosage: UNK UNK
     Route: 064

REACTIONS (1)
  - Laryngomalacia [Unknown]
